FAERS Safety Report 4744083-8 (Version None)
Quarter: 2005Q3

REPORT INFORMATION
  Report Type: 
  Country: None (occurrence: None)
  Receive Date: 20050812
  Receipt Date: 20050729
  Transmission Date: 20060218
  Serious: Yes (Other)
  Sender: FDA-Public Use
  Company Number: US-AMGEN-US144656

PATIENT
  Sex: Female

DRUGS (2)
  1. ENBREL [Suspect]
     Indication: RHEUMATOID ARTHRITIS
     Dates: start: 20040901, end: 20050728
  2. DEXAMETHASONE [Concomitant]
     Route: 048
     Dates: start: 20050527, end: 20050614

REACTIONS (3)
  - CERVICAL VERTEBRAL FRACTURE [None]
  - RESPIRATORY DISORDER [None]
  - URINARY TRACT INFECTION [None]
